FAERS Safety Report 9783293 (Version 1)
Quarter: 2013Q4

REPORT INFORMATION
  Report Type: Spontaneous
  Country: US (occurrence: US)
  Receive Date: 20131226
  Receipt Date: 20131226
  Transmission Date: 20140711
  Serious: Yes (Other)
  Sender: FDA-Public Use
  Company Number: US-PFIZER INC-2013366875

PATIENT
  Sex: 0

DRUGS (4)
  1. NEURONTIN [Suspect]
     Dosage: UNK
  2. LYRICA [Suspect]
     Dosage: 300 MG, 1X/DAY
  3. CYMBALTA [Suspect]
     Dosage: UNK
  4. NORCO [Suspect]
     Dosage: UNK

REACTIONS (4)
  - Spinal disorder [Unknown]
  - Accident [Unknown]
  - Transient ischaemic attack [Unknown]
  - Weight increased [Unknown]
